FAERS Safety Report 25861427 (Version 1)
Quarter: 2025Q3

REPORT INFORMATION
  Report Type: Report from Study
  Country: US (occurrence: US)
  Receive Date: 20250929
  Receipt Date: 20250929
  Transmission Date: 20251021
  Serious: Yes (Hospitalization)
  Sender: ABBVIE
  Company Number: US-ABBVIE-6325385

PATIENT
  Age: 57 Year
  Sex: Male
  Weight: 75.749 kg

DRUGS (8)
  1. VYALEV [Suspect]
     Active Substance: FOSCARBIDOPA\FOSLEVODOPA
     Indication: Parkinson^s disease
     Route: 058
     Dates: start: 20250529
  2. VYALEV [Suspect]
     Active Substance: FOSCARBIDOPA\FOSLEVODOPA
     Route: 058
  3. DIGOXIN [Concomitant]
     Active Substance: DIGOXIN
     Indication: Atrial fibrillation
  4. PRAVASTATIN [Concomitant]
     Active Substance: PRAVASTATIN
     Indication: Blood cholesterol abnormal
  5. ROPINIROLE [Concomitant]
     Active Substance: ROPINIROLE
     Indication: Parkinson^s disease
  6. ELIQUIS [Concomitant]
     Active Substance: APIXABAN
     Indication: Anticoagulant therapy
  7. METOPROLOL [Concomitant]
     Active Substance: METOPROLOL
     Indication: Heart rate increased
  8. ASPIRIN [Concomitant]
     Active Substance: ASPIRIN
     Indication: Atrial fibrillation

REACTIONS (10)
  - Infusion site reaction [Recovered/Resolved]
  - Injection site induration [Not Recovered/Not Resolved]
  - Infusion site infection [Recovered/Resolved]
  - Infusion site abscess [Recovered/Resolved]
  - Scab [Recovering/Resolving]
  - Atrial fibrillation [Recovered/Resolved]
  - Catheter site papule [Not Recovered/Not Resolved]
  - Catheter site infection [Not Recovered/Not Resolved]
  - Catheter site erythema [Not Recovered/Not Resolved]
  - Catheter site warmth [Not Recovered/Not Resolved]

NARRATIVE: CASE EVENT DATE: 20250101
